FAERS Safety Report 24198356 (Version 2)
Quarter: 2024Q3

REPORT INFORMATION
  Report Type: Spontaneous
  Country: US (occurrence: US)
  Receive Date: 20240812
  Receipt Date: 20240903
  Transmission Date: 20241017
  Serious: No
  Sender: ASTELLAS
  Company Number: US-ASTELLAS-2024US021537

PATIENT
  Age: 85 Year
  Sex: Male

DRUGS (2)
  1. VEOZAH [Suspect]
     Active Substance: FEZOLINETANT
     Indication: Hot flush
     Dosage: UNK UNK, UNKNOWN FREQ.
     Route: 065
  2. LUPRON DEPOT [Concomitant]
     Active Substance: LEUPROLIDE ACETATE
     Indication: Prostate cancer
     Dosage: UNK UNK, EVERY 3 MONTHS (SHOT)
     Route: 030

REACTIONS (2)
  - Off label use [Unknown]
  - Intentional product use issue [Unknown]
